FAERS Safety Report 7073221-X (Version None)
Quarter: 2010Q4

REPORT INFORMATION
  Report Type: 
  Country: None (occurrence: None)
  Receive Date: 20101029
  Receipt Date: 20100511
  Transmission Date: 20110411
  Serious: No
  Sender: FDA-Public Use
  Company Number: A0859148A

PATIENT
  Sex: Female

DRUGS (4)
  1. ADVAIR DISKUS 100/50 [Suspect]
     Indication: ASTHMA
     Route: 055
  2. DILANTIN [Concomitant]
  3. ATIVAN [Concomitant]
  4. TOPROL-XL [Concomitant]

REACTIONS (4)
  - ORAL PAIN [None]
  - RASH ERYTHEMATOUS [None]
  - STOMATITIS [None]
  - THIRST [None]
